FAERS Safety Report 21838575 (Version 3)
Quarter: 2024Q1

REPORT INFORMATION
  Report Type: Spontaneous
  Country: US (occurrence: US)
  Receive Date: 20230109
  Receipt Date: 20240226
  Transmission Date: 20240410
  Serious: Yes (Other)
  Sender: FDA-Public Use
  Company Number: US-JNJFOC-20230108794

PATIENT
  Age: 59 Year
  Sex: Female

DRUGS (6)
  1. ELMIRON [Suspect]
     Active Substance: PENTOSAN POLYSULFATE SODIUM
     Indication: Cystitis interstitial
     Route: 048
     Dates: start: 20100101, end: 20150316
  2. ELMIRON [Suspect]
     Active Substance: PENTOSAN POLYSULFATE SODIUM
     Route: 048
     Dates: start: 20150316, end: 20210731
  3. ELMIRON [Suspect]
     Active Substance: PENTOSAN POLYSULFATE SODIUM
     Route: 048
  4. LEXAPRO [Concomitant]
     Active Substance: ESCITALOPRAM OXALATE
     Indication: Depression
     Dates: start: 20150818
  5. HYOSCYAMINE SULFATE [Concomitant]
     Active Substance: HYOSCYAMINE SULFATE
     Indication: Irritable bowel syndrome
     Dates: start: 20150803, end: 20200925
  6. ROSUVASTATIN CALCIUM [Concomitant]
     Active Substance: ROSUVASTATIN CALCIUM
     Indication: Blood cholesterol abnormal
     Dates: start: 20211122

REACTIONS (5)
  - Dry age-related macular degeneration [Not Recovered/Not Resolved]
  - Maculopathy [Unknown]
  - Corneal dystrophy [Not Recovered/Not Resolved]
  - Retinal pigment epitheliopathy [Unknown]
  - Off label use [Unknown]

NARRATIVE: CASE EVENT DATE: 20100101
